FAERS Safety Report 10763522 (Version 6)
Quarter: 2019Q1

REPORT INFORMATION
  Report Type: Spontaneous
  Country: US (occurrence: US)
  Receive Date: 20150204
  Receipt Date: 20190219
  Transmission Date: 20190417
  Serious: Yes (Hospitalization, Other)
  Sender: FDA-Public Use
  Company Number: US-PFIZER INC-2015032584

PATIENT
  Age: 70 Year
  Sex: Female
  Weight: 72.56 kg

DRUGS (7)
  1. CALCIUM [Concomitant]
     Active Substance: CALCIUM
     Dosage: UNK
     Dates: start: 201301
  2. ZOCOR [Concomitant]
     Active Substance: SIMVASTATIN
     Dosage: 40 MG, UNK
  3. LYRICA [Suspect]
     Active Substance: PREGABALIN
     Indication: NERVOUS SYSTEM DISORDER
     Dosage: 150 MG, 2X/DAY (MORNING AND AFTERNOON)
     Route: 048
     Dates: start: 20190204
  4. LYRICA [Suspect]
     Active Substance: PREGABALIN
     Indication: FACIAL PAIN
  5. HCTZ [Concomitant]
     Active Substance: HYDROCHLOROTHIAZIDE
     Dosage: 25 MG, UNK
  6. CALTRATE WITH VITAMIN D [Concomitant]
     Active Substance: CALCIUM CARBONATE\CHOLECALCIFEROL
     Dosage: UNK
  7. LYRICA [Suspect]
     Active Substance: PREGABALIN
     Indication: TRIGEMINAL NEURALGIA
     Dosage: 150 MG, 2X/DAY; [30 DAYS]
     Route: 048
     Dates: start: 201304

REACTIONS (1)
  - Breast cancer female [Recovered/Resolved]
